FAERS Safety Report 5858990-6 (Version None)
Quarter: 2008Q3

REPORT INFORMATION
  Report Type: 
  Country: None (occurrence: None)
  Receive Date: 20080825
  Receipt Date: 20080814
  Transmission Date: 20090109
  Serious: Yes (Death, Hospitalization)
  Sender: FDA-Public Use
  Company Number: OSCN-PR-0808S-0492

PATIENT
  Sex: Female

DRUGS (3)
  1. OMNISCAN [Suspect]
     Indication: RENAL TRANSPLANT
     Dosage: SEE IMAGE
     Route: 042
     Dates: start: 20051220, end: 20051220
  2. OMNISCAN [Suspect]
     Indication: RENAL TRANSPLANT
     Dosage: SEE IMAGE
     Route: 042
     Dates: start: 20060309, end: 20060309
  3. OMNISCAN [Suspect]
     Indication: RENAL TRANSPLANT
     Dosage: SEE IMAGE
     Route: 042
     Dates: start: 20060310, end: 20060310

REACTIONS (11)
  - DECUBITUS ULCER [None]
  - DYSPNOEA [None]
  - ESCHERICHIA INFECTION [None]
  - FINGER AMPUTATION [None]
  - GANGRENE [None]
  - LEG AMPUTATION [None]
  - NEPHROGENIC SYSTEMIC FIBROSIS [None]
  - OEDEMA PERIPHERAL [None]
  - PERIPHERAL ISCHAEMIA [None]
  - SKIN CANDIDA [None]
  - WOUND INFECTION BACTERIAL [None]
